FAERS Safety Report 14998712 (Version 3)
Quarter: 2018Q2

REPORT INFORMATION
  Report Type: Spontaneous
  Country: DO (occurrence: DO)
  Receive Date: 20180612
  Receipt Date: 20180614
  Transmission Date: 20180711
  Serious: Yes (Other)
  Sender: FDA-Public Use
  Company Number: DO-ROCHE-2136804

PATIENT
  Age: 70 Year
  Sex: Male

DRUGS (1)
  1. GAZYVA [Suspect]
     Active Substance: OBINUTUZUMAB
     Indication: CHRONIC LYMPHOCYTIC LEUKAEMIA
     Route: 042
     Dates: start: 20180525, end: 20180525

REACTIONS (6)
  - Thrombocytopenia [Unknown]
  - Lymphocyte count decreased [Unknown]
  - Body temperature increased [Unknown]
  - Tremor [Unknown]
  - Respiratory distress [Unknown]
  - Pulmonary oedema [Unknown]

NARRATIVE: CASE EVENT DATE: 20180525
